FAERS Safety Report 5858587-8 (Version None)
Quarter: 2008Q3

REPORT INFORMATION
  Report Type: 
  Country: None (occurrence: None)
  Receive Date: 20080826
  Receipt Date: 20080814
  Transmission Date: 20090109
  Serious: Yes (Hospitalization, Other)
  Sender: FDA-Public Use
  Company Number: US-PFIZER INC-2008068265

PATIENT
  Age: 43 Year
  Sex: Female
  Weight: 48 kg

DRUGS (3)
  1. CHANTIX [Suspect]
     Dates: start: 20080101, end: 20080510
  2. BLINDED VARENICLINE (CP-526,555) [Suspect]
     Indication: PROPHYLAXIS
     Dosage: FREQ:ONCE
     Route: 048
     Dates: start: 20080409, end: 20080409
  3. BLINDED VARENICLINE (CP-526,555) [Suspect]
     Dosage: FREQ:ONCE
     Route: 042
     Dates: start: 20080409, end: 20080409

REACTIONS (1)
  - CONVULSION [None]
